FAERS Safety Report 7146331-6 (Version None)
Quarter: 2010Q4

REPORT INFORMATION
  Report Type: 
  Country: None (occurrence: None)
  Receive Date: 20101208
  Receipt Date: 20101130
  Transmission Date: 20110411
  Serious: Yes (Other)
  Sender: FDA-Public Use
  Company Number: US-PFIZER INC-2010161063

PATIENT
  Sex: Female
  Weight: 54 kg

DRUGS (12)
  1. PRISTIQ [Suspect]
     Indication: DEPRESSION
     Dosage: UNK
     Route: 048
     Dates: start: 20100624, end: 20100101
  2. STRATTERA [Suspect]
     Indication: TOURETTE'S DISORDER
     Dosage: UNK
     Route: 048
     Dates: start: 20100923, end: 20101104
  3. ELAVIL [Concomitant]
     Dosage: 20 MG, 1X/DAY
     Route: 048
  4. PROVIGIL [Concomitant]
     Dosage: 200 MG, 1X/DAY
     Route: 048
  5. SIMVASTATIN [Concomitant]
     Dosage: 80 MG, 1X/DAY
     Route: 048
  6. PRILOSEC [Concomitant]
     Dosage: 20 MG, 1X/DAY
     Route: 048
  7. BACLOFEN [Concomitant]
     Dosage: 20 MG, 3X/DAY
     Route: 048
  8. ATIVAN [Concomitant]
     Dosage: 2 MG, 1X/DAY
     Route: 048
  9. TOPAMAX [Concomitant]
     Dosage: 100 MG, 2X/DAY
     Route: 048
  10. AMITRIPTYLINE [Concomitant]
     Dosage: 20 MG, 1X/DAY
     Route: 048
  11. NEURONTIN [Concomitant]
     Dosage: 300 MG, 3X/DAY
     Route: 048
  12. ABILIFY [Concomitant]
     Indication: DEPRESSION
     Dosage: 2 MG, 1X/DAY
     Route: 048

REACTIONS (2)
  - BIPOLAR DISORDER [None]
  - HAIR TEXTURE ABNORMAL [None]
